FAERS Safety Report 8395096-9 (Version None)
Quarter: 2012Q2

REPORT INFORMATION
  Report Type: 
  Country: None (occurrence: None)
  Receive Date: 20120530
  Receipt Date: 20120518
  Transmission Date: 20120825
  Serious: Yes (Hospitalization)
  Sender: FDA-Public Use
  Company Number: CA-JNJFOC-20120514173

PATIENT
  Sex: Male
  Weight: 74 kg

DRUGS (4)
  1. REMICADE [Suspect]
     Indication: CROHN'S DISEASE
     Route: 042
     Dates: start: 20110621
  2. TYLENOL [Concomitant]
     Route: 065
  3. PREDNISONE TAB [Concomitant]
     Route: 065
  4. MAVIK [Concomitant]
     Route: 065

REACTIONS (8)
  - ARTHRALGIA [None]
  - NAUSEA [None]
  - FLUSHING [None]
  - PAIN [None]
  - BACK PAIN [None]
  - CHEST PAIN [None]
  - INFLUENZA LIKE ILLNESS [None]
  - DECREASED APPETITE [None]
